FAERS Safety Report 6304778-1 (Version None)
Quarter: 2009Q3

REPORT INFORMATION
  Report Type: 
  Country: None (occurrence: None)
  Receive Date: 20090806
  Receipt Date: 20090727
  Transmission Date: 20100115
  Serious: Yes (Death, Hospitalization)
  Sender: FDA-Public Use
  Company Number: WAES 0907USA05316

PATIENT
  Age: 65 Year
  Sex: Male

DRUGS (10)
  1. PRIMAXIN [Suspect]
  2. TAB PIRFENIDONE [Suspect]
     Indication: IDIOPATHIC PULMONARY FIBROSIS
     Dosage: 600 MG/DAILY PO, PO
     Route: 048
     Dates: start: 20090408, end: 20090515
  3. TAB PIRFENIDONE [Suspect]
     Indication: IDIOPATHIC PULMONARY FIBROSIS
     Dosage: 600 MG/DAILY PO, PO
     Route: 048
     Dates: start: 20090518, end: 20090520
  4. CIPROFLOXACIN HCL [Suspect]
  5. INJ DEXMEDETOMIDINE HYDROCHLORIDE [Suspect]
  6. INJ ELASPOL (SIVELESTAT SODIUM) [Suspect]
  7. FRAGMIN [Suspect]
  8. NEORAL [Suspect]
     Dosage: PO
     Route: 048
  9. BACTRIM [Suspect]
  10. INJ OMEPRAL (OMEPRAZOLE) [Suspect]
     Dosage: IV
     Route: 042

REACTIONS (5)
  - CONDITION AGGRAVATED [None]
  - IDIOPATHIC PULMONARY FIBROSIS [None]
  - PLATELET COUNT DECREASED [None]
  - VOMITING [None]
  - WHITE BLOOD CELL COUNT DECREASED [None]
